FAERS Safety Report 9834219 (Version 1)
Quarter: 2014Q1

REPORT INFORMATION
  Report Type: Spontaneous
  Country: US (occurrence: US)
  Receive Date: 20140122
  Receipt Date: 20140122
  Transmission Date: 20141002
  Serious: No
  Sender: FDA-Public Use
  Company Number: US-ENDO PHARMACEUTICALS INC.-HCDA20130071

PATIENT
  Age: 66 Year
  Sex: Male

DRUGS (1)
  1. HYDROCODONE/ACETAMINOPHEN 5MG/325MG [Suspect]
     Indication: BACK PAIN
     Dosage: 5/325MG
     Route: 048
     Dates: start: 20130311

REACTIONS (1)
  - Drug ineffective [Not Recovered/Not Resolved]
